FAERS Safety Report 6017986-4 (Version None)
Quarter: 2008Q4

REPORT INFORMATION
  Report Type: 
  Country: None (occurrence: None)
  Receive Date: 20081223
  Receipt Date: 20081222
  Transmission Date: 20090506
  Serious: Yes (Life-Threatening, Hospitalization)
  Sender: FDA-Public Use
  Company Number: A0761413A

PATIENT
  Age: 25 Year
  Sex: Male

DRUGS (5)
  1. PARNATE [Suspect]
     Indication: DRUG USE FOR UNKNOWN INDICATION
     Dosage: 2TAB SINGLE DOSE
  2. IMIPRAMINE [Suspect]
     Dosage: 2TAB SINGLE DOSE
  3. CITALOPRAM [Suspect]
  4. ALPRAZOLAM [Suspect]
  5. TIAPRIDE [Suspect]

REACTIONS (4)
  - OVERDOSE [None]
  - SOMNOLENCE [None]
  - SUICIDE ATTEMPT [None]
  - VOMITING [None]
